FAERS Safety Report 12925538 (Version 2)
Quarter: 2017Q1

REPORT INFORMATION
  Report Type: Spontaneous
  Country: US (occurrence: US)
  Receive Date: 20161108
  Receipt Date: 20170209
  Transmission Date: 20170428
  Serious: No
  Sender: FDA-Public Use
  Company Number: US-SA-2016SA161445

PATIENT
  Age: 56 Year
  Sex: Male
  Weight: 122.47 kg

DRUGS (5)
  1. ALIROCUMAB PREFILLED PEN [Suspect]
     Active Substance: ALIROCUMAB
     Indication: BLOOD CHOLESTEROL INCREASED
     Dates: start: 20160726
  2. COREG [Concomitant]
     Active Substance: CARVEDILOL
     Indication: EJECTION FRACTION
     Dosage: 12.5MG
     Dates: start: 2011
  3. WARFARIN [Concomitant]
     Active Substance: WARFARIN
     Indication: ATRIAL FIBRILLATION
     Dosage: 5MG
     Dates: start: 2009
  4. ALLOPURINOL. [Concomitant]
     Active Substance: ALLOPURINOL
     Indication: GOUT
     Dosage: 150MG
     Dates: start: 2012
  5. PRALUENT [Suspect]
     Active Substance: ALIROCUMAB
     Indication: BLOOD CHOLESTEROL INCREASED
     Route: 065
     Dates: start: 20160726

REACTIONS (3)
  - Injection site reaction [Not Recovered/Not Resolved]
  - Device use issue [Unknown]
  - Injection site haemorrhage [Unknown]

NARRATIVE: CASE EVENT DATE: 201608
